FAERS Safety Report 19967074 (Version 1)
Quarter: 2021Q4

REPORT INFORMATION
  Report Type: Spontaneous
  Country: US (occurrence: US)
  Receive Date: 20211019
  Receipt Date: 20211019
  Transmission Date: 20220303
  Serious: No
  Sender: FDA-Public Use
  Company Number: US-TEVA-2021-US-1964467

PATIENT
  Age: 88 Year
  Sex: Male

DRUGS (1)
  1. CLONIDINE HYDROCHLORIDE [Suspect]
     Active Substance: CLONIDINE HYDROCHLORIDE
     Indication: Hypertension
     Dosage: DOSE IS ONE PATCH, CHANGE EVERY 7 DAYS
     Route: 062
     Dates: start: 2020

REACTIONS (1)
  - Application site irritation [Not Recovered/Not Resolved]
